FAERS Safety Report 7096576-9 (Version None)
Quarter: 2010Q4

REPORT INFORMATION
  Report Type: 
  Country: None (occurrence: None)
  Receive Date: 20101111
  Receipt Date: 20101104
  Transmission Date: 20110411
  Serious: Yes (Other)
  Sender: FDA-Public Use
  Company Number: B0683406A

PATIENT
  Age: 75 Year
  Sex: Male

DRUGS (7)
  1. AVOLVE [Suspect]
     Indication: PRODUCT USED FOR UNKNOWN INDICATION
     Route: 048
     Dates: start: 20101101
  2. WARFARIN SODIUM [Concomitant]
     Route: 048
  3. ALLELOCK [Concomitant]
     Route: 048
  4. ANTIALLERGIC DRUG [Concomitant]
     Route: 065
  5. URINORM [Concomitant]
     Route: 048
  6. BLOPRESS [Concomitant]
     Route: 048
  7. CRESTOR [Concomitant]
     Route: 048

REACTIONS (2)
  - RASH [None]
  - RETINAL HAEMORRHAGE [None]
